FAERS Safety Report 15077737 (Version 1)
Quarter: 2018Q3

REPORT INFORMATION
  Report Type: Spontaneous
  Country: FI (occurrence: FI)
  Receive Date: 20180627
  Receipt Date: 20180627
  Transmission Date: 20181010
  Serious: Yes (Congenital Anomaly, Other)
  Sender: FDA-Public Use
  Company Number: FI-MYLANLABS-2018M1045583

PATIENT
  Sex: Male

DRUGS (17)
  1. EMGESAN 250 MG TABLETIT [Suspect]
     Active Substance: MAGNESIUM HYDROXIDE
     Dosage: 125 MG, PRN
     Route: 064
     Dates: start: 20171020
  2. KETIPINOR [Suspect]
     Active Substance: QUETIAPINE FUMARATE
     Dosage: 100 MG + 100 MG + 200
     Route: 064
     Dates: start: 20171020
  3. OXAMIN [Suspect]
     Active Substance: OXAZEPAM
     Indication: PRODUCT USED FOR UNKNOWN INDICATION
     Dosage: 45 MG, QD
     Route: 064
     Dates: start: 20170824
  4. SEROQUEL [Suspect]
     Active Substance: QUETIAPINE FUMARATE
     Indication: PRODUCT USED FOR UNKNOWN INDICATION
     Dosage: 500 MG, QD
     Route: 064
     Dates: start: 20171020
  5. PANADOL FORTE                      /00020001/ [Suspect]
     Active Substance: ACETAMINOPHEN
     Indication: PRODUCT USED FOR UNKNOWN INDICATION
     Dosage: 1 DF, PRN
     Route: 064
     Dates: start: 20171020
  6. EMGESAN 250 MG TABLETIT [Suspect]
     Active Substance: MAGNESIUM HYDROXIDE
     Indication: PRODUCT USED FOR UNKNOWN INDICATION
     Dosage: 125 MG, PRN, MAX. 250 MG A DAY
     Route: 064
     Dates: start: 20170824
  7. KETIPINOR [Suspect]
     Active Substance: QUETIAPINE FUMARATE
     Dosage: 2 TABLETS ONCE A DAY AND ADDITIONALLY 100 MG IF NEEDED (MAXIMUM 300 MG A DAY
     Route: 064
     Dates: start: 20170824
  8. SEROQUEL [Suspect]
     Active Substance: QUETIAPINE FUMARATE
     Dosage: 1 DF, QD
     Route: 064
     Dates: start: 20170922
  9. OPAMOX [Suspect]
     Active Substance: OXAZEPAM
     Indication: PRODUCT USED FOR UNKNOWN INDICATION
     Dosage: 1 DF, TID
     Route: 064
     Dates: start: 20170922
  10. OPAMOX [Suspect]
     Active Substance: OXAZEPAM
     Dosage: 15 MG?30 MG AS NEEDED
     Route: 064
     Dates: start: 20171020
  11. KETIPINOR [Suspect]
     Active Substance: QUETIAPINE FUMARATE
     Indication: PRODUCT USED FOR UNKNOWN INDICATION
     Dosage: 1?2 TABLETS A DAY
     Route: 064
     Dates: start: 20170505
  12. KETIPINOR [Suspect]
     Active Substance: QUETIAPINE FUMARATE
     Dosage: 50 MG + 50 MG + 200 MG EVERY DAY
     Route: 064
     Dates: start: 20170922
  13. TENOX                              /00393701/ [Suspect]
     Active Substance: TEMAZEPAM
     Indication: PRODUCT USED FOR UNKNOWN INDICATION
     Dosage: 1 TABLET IN THE EVENING
     Route: 064
     Dates: start: 20170505
  14. EMGESAN 250 MG TABLETIT [Suspect]
     Active Substance: MAGNESIUM HYDROXIDE
     Dosage: 125 MG, PRN
     Route: 064
     Dates: start: 20170922
  15. LORAZEPAM. [Suspect]
     Active Substance: LORAZEPAM
     Indication: PRODUCT USED FOR UNKNOWN INDICATION
     Dosage: 4 MG, PRN
     Route: 064
     Dates: start: 20171020
  16. PROPRANOLOL [Suspect]
     Active Substance: PROPRANOLOL HYDROCHLORIDE
     Indication: PRODUCT USED FOR UNKNOWN INDICATION
     Dosage: 1 DF, QD
     Route: 064
     Dates: start: 20171020
  17. SEROQUEL [Suspect]
     Active Substance: QUETIAPINE FUMARATE
     Indication: PRODUCT USED FOR UNKNOWN INDICATION
     Dosage: 1 DF, QD
     Route: 064
     Dates: start: 20170824

REACTIONS (7)
  - Poor sucking reflex [Unknown]
  - Heterotaxia [Unknown]
  - Hereditary disorder [Unknown]
  - Polydactyly [Unknown]
  - Premature baby [Unknown]
  - Foetal exposure during pregnancy [Recovered/Resolved]
  - Cardiac septal defect [Unknown]

NARRATIVE: CASE EVENT DATE: 2017
